FAERS Safety Report 21545622 (Version 1)
Quarter: 2022Q4

REPORT INFORMATION
  Report Type: Spontaneous
  Country: US (occurrence: US)
  Receive Date: 20221103
  Receipt Date: 20221103
  Transmission Date: 20230112
  Serious: Yes (Hospitalization, Other)
  Sender: FDA-Public Use
  Company Number: US-MLMSERVICE-20221018-3867086-1

PATIENT
  Age: 45 Year
  Sex: Female

DRUGS (6)
  1. CARBOPLATIN [Suspect]
     Active Substance: CARBOPLATIN
     Indication: Cholangiocarcinoma
     Dosage: UNK
     Route: 013
  2. CARBOPLATIN [Suspect]
     Active Substance: CARBOPLATIN
     Indication: Transcatheter arterial chemoembolisation
  3. IRINOTECAN HYDROCHLORIDE [Suspect]
     Active Substance: IRINOTECAN HYDROCHLORIDE
     Indication: Cholangiocarcinoma
     Dosage: UNK
     Route: 013
  4. IRINOTECAN HYDROCHLORIDE [Suspect]
     Active Substance: IRINOTECAN HYDROCHLORIDE
     Indication: Transcatheter arterial chemoembolisation
  5. GEMCITABINE [Suspect]
     Active Substance: GEMCITABINE
     Indication: Cholangiocarcinoma
     Dosage: UNK
     Route: 013
  6. GEMCITABINE [Suspect]
     Active Substance: GEMCITABINE
     Indication: Transcatheter arterial chemoembolisation

REACTIONS (1)
  - Febrile neutropenia [Unknown]
